FAERS Safety Report 9556455 (Version 2)
Quarter: 2014Q2

REPORT INFORMATION
  Report Type: Spontaneous
  Country: US (occurrence: None)
  Receive Date: 20130906
  Receipt Date: 20140416
  Transmission Date: 20141212
  Serious: Yes (Other)
  Sender: FDA-Public Use
  Company Number: 163-POMAL-13061506

PATIENT
  Age: 75 Year
  Sex: Male

DRUGS (17)
  1. POMALYST [Suspect]
     Indication: PLASMA CELL MYELOMA
     Route: 048
     Dates: start: 201303
  2. PRAVASTATIN SODIUM [Concomitant]
  3. METFORMIN HCL (METFORMIN HYDROCHLORIDE) [Concomitant]
  4. QUINAPRIL [Concomitant]
  5. OMEPRAZOLE [Concomitant]
  6. LEVEMIR (INSULIN DETEMIR) [Concomitant]
  7. NOVOLOG (INSULIN ASPART) [Concomitant]
  8. GLIPIZIDE [Concomitant]
  9. VITAMIN C [Concomitant]
  10. FISH OIL [Concomitant]
  11. MULTIVITAMINS [Concomitant]
  12. HYDROCORTISONE [Concomitant]
  13. CIPROFLOXACIN [Concomitant]
  14. JANTOVEN (WARFARIN SODIUM) [Concomitant]
  15. ASPIRINE (ACETYLSALICYLIC ACID) [Concomitant]
  16. VALACYCLOVIR (VALACICLOVIR HYDROCHLORIDE) [Concomitant]
  17. DEXAMETHASONE [Concomitant]

REACTIONS (2)
  - Thrombosis [None]
  - Deep vein thrombosis [None]
